FAERS Safety Report 4268624-2 (Version None)
Quarter: 2004Q1

REPORT INFORMATION
  Report Type: 
  Country: None (occurrence: None)
  Receive Date: 20040108
  Receipt Date: 20040105
  Transmission Date: 20041129
  Serious: Yes (Disabling, Other)
  Sender: FDA-Public Use
  Company Number: GB-JNJFOC-20040100349

PATIENT
  Age: 26 Year
  Sex: Female

DRUGS (2)
  1. TOPAMAX [Suspect]
     Indication: CONVULSION
     Dosage: 175 MG, 2 IN 1 DAY, ORAL
     Route: 048
     Dates: start: 19981202
  2. TEGRETOL [Concomitant]

REACTIONS (2)
  - DIARRHOEA [None]
  - SKIN ULCER [None]
